FAERS Safety Report 13718588 (Version 5)
Quarter: 2017Q3

REPORT INFORMATION
  Report Type: Report from Study
  Country: US (occurrence: US)
  Receive Date: 20170705
  Receipt Date: 20170912
  Transmission Date: 20171127
  Serious: Yes (Hospitalization, Other)
  Sender: FDA-Public Use
  Company Number: US-BAYER-2017-070863

PATIENT
  Sex: Female
  Weight: 126.8 kg

DRUGS (4)
  1. ADEMPAS [Suspect]
     Active Substance: RIOCIGUAT
     Indication: PULMONARY ARTERIAL HYPERTENSION
     Dosage: 2.5 MG, TID
     Route: 048
  2. ADEMPAS [Suspect]
     Active Substance: RIOCIGUAT
     Indication: PULMONARY ARTERIAL HYPERTENSION
     Dosage: 1.0 MG, TID
     Route: 048
  3. ADEMPAS [Suspect]
     Active Substance: RIOCIGUAT
     Indication: PULMONARY ARTERIAL HYPERTENSION
     Dosage: UNK
     Dates: start: 20160824
  4. ADEMPAS [Suspect]
     Active Substance: RIOCIGUAT
     Indication: PULMONARY ARTERIAL HYPERTENSION
     Dosage: 2.5 MG, TID
     Route: 048

REACTIONS (25)
  - Hospitalisation [None]
  - Dyspnoea [Unknown]
  - Oedema [None]
  - Abnormal behaviour [None]
  - Speech disorder [None]
  - Pneumonia [None]
  - Hospitalisation [Unknown]
  - Hepatic encephalopathy [None]
  - Increased viscosity of bronchial secretion [Unknown]
  - Cough [None]
  - Product availability issue [None]
  - Pain in extremity [None]
  - Arthritis [None]
  - Retching [Unknown]
  - Depressed mood [None]
  - Arthralgia [None]
  - Dry mouth [Unknown]
  - Rectal obstruction [Unknown]
  - Cough [Unknown]
  - Memory impairment [None]
  - Lung disorder [Unknown]
  - Burning sensation [Unknown]
  - Sputum retention [None]
  - Fatigue [None]
  - Insomnia [None]
